FAERS Safety Report 7858569-0 (Version None)
Quarter: 2011Q4

REPORT INFORMATION
  Report Type: 
  Country: None (occurrence: None)
  Receive Date: 20111027
  Receipt Date: 20111017
  Transmission Date: 20120403
  Serious: Yes (Other)
  Sender: FDA-Public Use
  Company Number: JP-JNJFOC-20111002609

PATIENT
  Age: 26 Year
  Sex: Female
  Weight: 55 kg

DRUGS (25)
  1. CLONIDINE HYDROCHLORIDE [Suspect]
     Indication: PAIN
     Route: 048
     Dates: start: 20110606, end: 20110617
  2. PROCHLORPERAZINE MALEATE [Suspect]
     Indication: PRODUCT USED FOR UNKNOWN INDICATION
     Route: 048
     Dates: start: 20110607, end: 20110616
  3. CODEIN PHOSPHATE [Suspect]
     Dosage: 1 AS NECESSARY
     Route: 048
     Dates: start: 20110606
  4. SENNOSIDE [Suspect]
     Indication: PRODUCT USED FOR UNKNOWN INDICATION
     Route: 048
     Dates: start: 20110511, end: 20110530
  5. BETAHISTINE MESILATE [Suspect]
     Indication: PRODUCT USED FOR UNKNOWN INDICATION
     Dosage: 1 AS NECESSARY
     Route: 048
     Dates: start: 20110523, end: 20110605
  6. FENTANYL-100 [Suspect]
     Indication: PAIN
     Route: 062
     Dates: start: 20110530, end: 20110606
  7. FENTANYL-100 [Suspect]
     Route: 062
     Dates: start: 20110628, end: 20110630
  8. FENTANYL-100 [Suspect]
     Route: 062
     Dates: start: 20110701, end: 20110801
  9. TRAMADOL HCL [Suspect]
     Indication: PAIN
     Dosage: 1 AS NEEDED
     Route: 048
     Dates: start: 20110627
  10. MAGNESIUM OXIDE [Suspect]
     Indication: PRODUCT USED FOR UNKNOWN INDICATION
     Dosage: 1 AS NEEDED
     Route: 048
     Dates: start: 20110511, end: 20110530
  11. MORPHINE HCL ELIXIR [Suspect]
     Dosage: 1 AS NECESSARY
     Route: 048
     Dates: start: 20110624
  12. METOCLOPRAMIDE [Suspect]
     Indication: PRODUCT USED FOR UNKNOWN INDICATION
     Route: 048
     Dates: start: 20110530, end: 20110606
  13. DIFENIDOL HYDROCHLORIDE [Suspect]
     Indication: PRODUCT USED FOR UNKNOWN INDICATION
     Route: 048
     Dates: start: 20110607, end: 20110703
  14. CODEIN PHOSPHATE [Suspect]
     Indication: PAIN
     Dosage: 1 AS NECESSARY
     Route: 048
     Dates: start: 20110613
  15. EPERISONE HYDROCHLORIDE [Suspect]
     Indication: PAIN
     Route: 048
     Dates: start: 20110704, end: 20110714
  16. ALPRAZOLAM [Suspect]
     Indication: PRODUCT USED FOR UNKNOWN INDICATION
     Dosage: 1 AS NECESSARY
     Route: 048
     Dates: start: 20110530, end: 20110805
  17. PREGABALIN [Suspect]
     Indication: PAIN
     Route: 048
     Dates: start: 20110704, end: 20110805
  18. MORPHINE HCL ELIXIR [Suspect]
     Indication: PAIN
     Dosage: 1 AS NECESSARY
     Route: 048
     Dates: start: 20110620
  19. CLONIDINE HYDROCHLORIDE [Suspect]
     Route: 048
     Dates: start: 20110523, end: 20110605
  20. FENTANYL-100 [Suspect]
     Route: 062
     Dates: start: 20110606, end: 20110627
  21. CODEIN PHOSPHATE [Suspect]
     Dosage: 1 AS NECESSARY
     Route: 048
     Dates: start: 20110530
  22. LOXOPROFEN SODIUM [Suspect]
     Indication: PRODUCT USED FOR UNKNOWN INDICATION
     Dosage: 1 AS NECESSARY
     Route: 048
     Dates: start: 20110523, end: 20110605
  23. TRIAZOLAM [Suspect]
     Indication: PRODUCT USED FOR UNKNOWN INDICATION
     Route: 048
     Dates: start: 20110530, end: 20110805
  24. ZOLPIDEM TARTRATE [Suspect]
     Indication: PRODUCT USED FOR UNKNOWN INDICATION
     Dosage: 1 AS NECESSARY
     Route: 048
     Dates: start: 20110627, end: 20110805
  25. SERTRALINE HYDROCHLORIDE [Suspect]
     Indication: PRODUCT USED FOR UNKNOWN INDICATION
     Route: 048
     Dates: start: 20110704, end: 20110805

REACTIONS (2)
  - MATERNAL EXPOSURE DURING PREGNANCY [None]
  - ABORTION SPONTANEOUS [None]
